FAERS Safety Report 8379375-7 (Version None)
Quarter: 2012Q1

REPORT INFORMATION
  Report Type: 
  Country: None (occurrence: None)
  Receive Date: 20120323
  Receipt Date: 20110316
  Transmission Date: 20120608
  Serious: Yes (Other)
  Sender: FDA-Public Use
  Company Number: 163-21880-11032064

PATIENT
  Age: 74 Year
  Sex: Female
  Weight: 77.5651 kg

DRUGS (12)
  1. MULTIVITAMINS (MULTIVITAMINS) (UNKNOWN) [Concomitant]
  2. TRIAM/HCTZ (DYAZIDE) (UNKNOWN) [Concomitant]
  3. EVISTA [Concomitant]
  4. FEXOFENADINE [Concomitant]
  5. VELCADE [Concomitant]
  6. VITAMIN B12 (CYANOCOBALAMIN) (UNKNOWN) [Concomitant]
  7. NAPROXEN [Concomitant]
  8. NEXIUM [Concomitant]
  9. REVLIMID [Suspect]
     Indication: MULTIPLE MYELOMA
     Dosage: 25 MG, QD X 14 DAYS, 7 DAYS OFF Q 21 DAYS, PO
     Route: 048
     Dates: start: 20101101
  10. LORTAB (VICODIN) (UNKNOWN) [Concomitant]
  11. VITAMIN D3 (COLECALCIFEROL) (UNKNOWN) [Concomitant]
  12. ALPRAZOLAM [Concomitant]

REACTIONS (2)
  - FALL [None]
  - TREMOR [None]
